FAERS Safety Report 4797261-6 (Version None)
Quarter: 2005Q4

REPORT INFORMATION
  Report Type: 
  Country: None (occurrence: None)
  Receive Date: 20051013
  Receipt Date: 20050926
  Transmission Date: 20060501
  Serious: Yes (Hospitalization)
  Sender: FDA-Public Use
  Company Number: PHRM2005FR02564

PATIENT
  Age: 57 Year
  Sex: Female
  Weight: 93 kg

DRUGS (12)
  1. SOLU-MEDROL [Concomitant]
  2. AZANTAC [Concomitant]
  3. TAXOL [Concomitant]
  4. FLUOROURACIL [Concomitant]
  5. ONDANSETRON [Concomitant]
  6. TRIATEC [Concomitant]
  7. ZOLPIDEM TARTRATE [Concomitant]
  8. CORDARONE [Concomitant]
  9. CLONAZEPAM [Concomitant]
  10. IXPRIM [Concomitant]
  11. EFFERALGAN CODEINE [Concomitant]
  12. ZOMETA [Suspect]
     Indication: METASTASES TO BONE
     Dosage: 4 MG, QMO
     Route: 042
     Dates: start: 20030509, end: 20050608

REACTIONS (4)
  - BONE OPERATION [None]
  - OSTEITIS [None]
  - OSTEONECROSIS [None]
  - TOOTH EXTRACTION [None]
